FAERS Safety Report 11205294 (Version 1)
Quarter: 2015Q2

REPORT INFORMATION
  Report Type: Spontaneous
  Country: US (occurrence: None)
  Receive Date: 20150618
  Receipt Date: 20150618
  Transmission Date: 20150821
  Serious: Yes (Hospitalization)
  Sender: FDA-Public Use
  Company Number: None

PATIENT
  Age: 78 Year
  Sex: Male
  Weight: 90.8 kg

DRUGS (1)
  1. INDOMETHACIN. [Suspect]
     Active Substance: INDOMETHACIN
     Indication: GOUT
     Route: 048
     Dates: start: 20150312, end: 20150316

REACTIONS (3)
  - Clostridium difficile infection [None]
  - Acute kidney injury [None]
  - Anaemia [None]

NARRATIVE: CASE EVENT DATE: 20150320
